FAERS Safety Report 5528129-5 (Version None)
Quarter: 2007Q4

REPORT INFORMATION
  Report Type: 
  Country: None (occurrence: None)
  Receive Date: 20071121
  Receipt Date: 20071113
  Transmission Date: 20080405
  Serious: Yes (Other)
  Sender: FDA-Public Use
  Company Number: 2007SP022932

PATIENT
  Age: 71 Year
  Sex: Male
  Weight: 76 kg

DRUGS (4)
  1. INTRON A [Suspect]
     Indication: MALIGNANT MELANOMA
     Dosage: 10 MIU; 3 MIU; 1.5 MIU; 1 MIU
  2. INTRON A [Suspect]
     Indication: MALIGNANT MELANOMA
     Dosage: 10 MIU; 3 MIU; 1.5 MIU; 1 MIU
  3. INTRON A [Suspect]
     Indication: MALIGNANT MELANOMA
     Dosage: 10 MIU; 3 MIU; 1.5 MIU; 1 MIU
  4. INTRON A [Suspect]
     Indication: MALIGNANT MELANOMA
     Dosage: 10 MIU; 3 MIU; 1.5 MIU; 1 MIU
     Dates: start: 19980101

REACTIONS (2)
  - PARKINSON'S DISEASE [None]
  - PORPHYRIA NON-ACUTE [None]
